FAERS Safety Report 7321768-0 (Version None)
Quarter: 2011Q1

REPORT INFORMATION
  Report Type: 
  Country: None (occurrence: None)
  Receive Date: 20110223
  Receipt Date: 20110223
  Transmission Date: 20110831
  Serious: No
  Sender: FDA-Public Use
  Company Number: None

PATIENT
  Sex: Female

DRUGS (1)
  1. MOMETASONE FUROATE CREAM 0.1% PERRIGO [Suspect]
     Dosage: 15GRAMS ONCE A DAY TOP
     Route: 061
     Dates: start: 20110219, end: 20110219

REACTIONS (4)
  - PRODUCT SUBSTITUTION ISSUE [None]
  - ERYTHEMA [None]
  - PAIN [None]
  - PRODUCT FORMULATION ISSUE [None]
